FAERS Safety Report 4686195-3 (Version None)
Quarter: 2005Q2

REPORT INFORMATION
  Report Type: 
  Country: None (occurrence: None)
  Receive Date: 20050609
  Receipt Date: 20050606
  Transmission Date: 20051028
  Serious: Yes (Other)
  Sender: FDA-Public Use
  Company Number: GB-BOEHRINGER INGELHEIM PHARMACEUTICALS, INC.-2005-UK-00988UK

PATIENT
  Age: 54 Year
  Sex: Male
  Weight: 73 kg

DRUGS (9)
  1. ATROVENT [Suspect]
     Indication: ASTHMA
     Dosage: 8 PUFFS FOUR TIMES DAILY
     Route: 055
     Dates: start: 20050506, end: 20050519
  2. THEOPHYLLINE [Suspect]
     Indication: ASTHMA
     Dosage: 200 MG TWICE DAILY
     Route: 048
     Dates: start: 20050506, end: 20050519
  3. LEVOFLOXACIN [Suspect]
     Indication: ASTHMA
     Dosage: 500 MG TWICE DAILY
     Route: 048
     Dates: start: 20050511, end: 20050518
  4. PREDNISOLONE [Concomitant]
     Route: 065
     Dates: end: 20050517
  5. ASPIRIN [Concomitant]
     Indication: CORONARY ARTERY DISEASE
     Dosage: 150 MG ONCE DAILY
     Route: 048
  6. AMLODIPINE [Concomitant]
     Indication: HYPERTENSION
     Dosage: 10 MG ONCE DAILY
     Route: 048
  7. PERINDOPRIL [Concomitant]
     Indication: HYPERTENSION
     Dosage: 4 MG ONCE DAILY
     Route: 048
  8. BISOPROLOL FUMARATE [Concomitant]
     Indication: PAIN
     Dosage: 5 MG TWICE DAILY
     Route: 048
  9. SALBUTAMOL [Concomitant]
     Indication: ASTHMA
     Dosage: AS REQUIRED
     Route: 055

REACTIONS (6)
  - ARTHRALGIA [None]
  - DYSPHAGIA [None]
  - DYSPNOEA EXERTIONAL [None]
  - EYE SWELLING [None]
  - HYPERSENSITIVITY [None]
  - URTICARIA [None]
